FAERS Safety Report 17437610 (Version 1)
Quarter: 2020Q1

REPORT INFORMATION
  Report Type: Spontaneous
  Country: CN (occurrence: CN)
  Receive Date: 20200219
  Receipt Date: 20200219
  Transmission Date: 20200409
  Serious: Yes (Death, Life-Threatening, Hospitalization)
  Sender: FDA-Public Use
  Company Number: CN-ROCHE-2549096

PATIENT
  Age: 29 Year
  Sex: Male

DRUGS (4)
  1. MOXIFLOXACIN. [Suspect]
     Active Substance: MOXIFLOXACIN
     Indication: SEPTIC SHOCK
     Route: 042
     Dates: start: 20170727
  2. OSELTAMIVIR [Suspect]
     Active Substance: OSELTAMIVIR
     Indication: SEPTIC SHOCK
     Route: 042
     Dates: start: 20170727
  3. GANCICLOVIR. [Suspect]
     Active Substance: GANCICLOVIR
     Indication: SEPTIC SHOCK
     Route: 042
     Dates: start: 20170727
  4. IMIPENEM [Suspect]
     Active Substance: IMIPENEM
     Indication: SEPTIC SHOCK
     Route: 042
     Dates: start: 20170727

REACTIONS (3)
  - Acute respiratory distress syndrome [Unknown]
  - Off label use [Unknown]
  - Intentional product use issue [Unknown]
